FAERS Safety Report 8914616 (Version 2)
Quarter: 2013Q3

REPORT INFORMATION
  Report Type: Spontaneous
  Country: US (occurrence: US)
  Receive Date: 20121119
  Receipt Date: 20130904
  Transmission Date: 20140515
  Serious: Yes (Hospitalization, Other)
  Sender: FDA-Public Use
  Company Number: US-ASTRAZENECA-2012SE72369

PATIENT
  Age: 45 Year
  Sex: Female
  Weight: 90.7 kg

DRUGS (29)
  1. NEXIUM [Suspect]
     Indication: GASTROOESOPHAGEAL REFLUX DISEASE
     Route: 048
  2. NEXIUM [Suspect]
     Indication: GASTROOESOPHAGEAL REFLUX DISEASE
     Route: 048
  3. NEXIUM [Suspect]
     Indication: OESOPHAGEAL SPASM
     Route: 048
  4. NEXIUM [Suspect]
     Indication: GASTROOESOPHAGEAL REFLUX DISEASE
     Route: 048
  5. NEXIUM [Suspect]
     Indication: GASTROOESOPHAGEAL REFLUX DISEASE
     Route: 048
  6. NEXIUM [Suspect]
     Indication: OESOPHAGEAL SPASM
     Route: 048
  7. SYMBICORT [Suspect]
     Indication: ASTHMA
     Dosage: 160 MCG, TWO TIMES DAILY
     Route: 055
     Dates: start: 201210
  8. PRILOSEC [Suspect]
     Route: 048
  9. SINGULAIR [Concomitant]
     Indication: HYPERSENSITIVITY
     Route: 048
  10. SINGULAIR [Concomitant]
     Indication: ASTHMA
     Route: 048
  11. ATROVENT [Concomitant]
     Indication: HYPERSENSITIVITY
     Dosage: 1 SQUIRT EACH NOSTRIL, TWO TIMES A DAY
     Route: 045
     Dates: start: 2000
  12. PROAIR [Concomitant]
     Indication: ASTHMA
     Dosage: PRN
     Route: 055
  13. ZYRTEC [Concomitant]
     Indication: HYPERSENSITIVITY
     Route: 048
  14. FLONASE [Concomitant]
     Indication: HYPERSENSITIVITY
     Route: 045
  15. BENTYL [Concomitant]
     Indication: IRRITABLE BOWEL SYNDROME
     Route: 048
     Dates: start: 1995
  16. KLONIPIN [Concomitant]
     Indication: OESOPHAGEAL SPASM
     Route: 048
     Dates: start: 2009
  17. KLONIPIN [Concomitant]
     Indication: RELAXATION THERAPY
     Route: 048
     Dates: start: 2009
  18. KLONIPIN [Concomitant]
     Indication: OESOPHAGEAL SPASM
     Dosage: 2 DAILY
     Route: 048
  19. KLONIPIN [Concomitant]
     Indication: RELAXATION THERAPY
     Dosage: 2 DAILY
     Route: 048
  20. GENERIC PROZAC [Concomitant]
     Indication: OESOPHAGEAL SPASM
     Route: 048
     Dates: start: 2012
  21. GENERIC PROZAC [Concomitant]
     Indication: RELAXATION THERAPY
     Route: 048
     Dates: start: 2012
  22. ALVESCO [Concomitant]
     Indication: ASTHMA
     Route: 055
     Dates: start: 201210
  23. ALBUTEROL BREATHING TREATMENTS [Concomitant]
  24. BIAXIN [Concomitant]
  25. MEDROL [Concomitant]
  26. METHYLPREDNISOLONE INJECTION [Concomitant]
  27. ZANTAC [Concomitant]
  28. ATIVAN [Concomitant]
     Dosage: PRN
  29. DONNITOL [Concomitant]
     Dosage: PRN

REACTIONS (28)
  - Road traffic accident [Unknown]
  - Nerve injury [Unknown]
  - Monoplegia [Unknown]
  - Muscle spasms [Unknown]
  - Muscle injury [Unknown]
  - Concussion [Unknown]
  - Musculoskeletal discomfort [Unknown]
  - Bladder disorder [Unknown]
  - Oesophageal spasm [Unknown]
  - Gastroenteritis viral [Unknown]
  - Vomiting [Unknown]
  - Loss of consciousness [Unknown]
  - Asthma [Unknown]
  - Asthma [Unknown]
  - Asthma [Unknown]
  - Sinusitis [Unknown]
  - Hiatus hernia [Unknown]
  - Migraine [Unknown]
  - Feeling abnormal [Unknown]
  - Chest pain [Unknown]
  - Memory impairment [Unknown]
  - Cystitis interstitial [Unknown]
  - Irritable bowel syndrome [Unknown]
  - Adverse event [Unknown]
  - Hypersensitivity [Unknown]
  - Hypersensitivity [Unknown]
  - Drug ineffective [Unknown]
  - Circumstance or information capable of leading to medication error [Unknown]
